FAERS Safety Report 10042838 (Version 1)
Quarter: 2014Q1

REPORT INFORMATION
  Report Type: Spontaneous
  Country: US (occurrence: US)
  Receive Date: 20140327
  Receipt Date: 20140327
  Transmission Date: 20141002
  Serious: Yes (Other)
  Sender: FDA-Public Use
  Company Number: US-RB-064937-14

PATIENT
  Sex: Female

DRUGS (5)
  1. SUBOXONE TABLET [Suspect]
     Indication: DRUG DEPENDENCE
     Dosage: DOSING DETAILS UNKNOWN; THE PATIENT WAS TAKING VARIOUS DOSES
     Route: 060
     Dates: start: 2012
  2. SUBOXONE TABLET [Suspect]
     Dosage: DOSING DETAILS UNKNOWN; THE PATIENT WAS CUTTING TABLETS AND TAKING VARIOUS DOSES
     Route: 060
     Dates: start: 201308, end: 201310
  3. SUBOXONE FILM [Suspect]
     Indication: DRUG DEPENDENCE
     Dosage: SUBOXONE FILM; ONE FILM LASTED FOR 5 DAYS; CURRENTLY TAKING 1-2 MG DAILY
     Route: 060
     Dates: start: 201310
  4. PRENATAL VITAMINS [Concomitant]
     Indication: PRENATAL CARE
     Dosage: DOSING DETAILS UNKNOWN; THE PATIENT WAS TAKING 1 TABLET DAILY
     Route: 048
  5. CIGARETTES [Concomitant]
     Indication: NICOTINE DEPENDENCE
     Dosage: THE PATIENT WAS TAKING 20 CIGARETTES DAILY AND REDUCED TO 8 DAILY
     Route: 055

REACTIONS (5)
  - Substance abuse [Not Recovered/Not Resolved]
  - Wrong technique in drug usage process [Not Recovered/Not Resolved]
  - Polymenorrhoea [Recovered/Resolved]
  - Maternal exposure during pregnancy [Not Recovered/Not Resolved]
  - Vaginal haemorrhage [Recovered/Resolved]
